FAERS Safety Report 20636138 (Version 8)
Quarter: 2022Q3

REPORT INFORMATION
  Report Type: Report from Study
  Country: US (occurrence: US)
  Receive Date: 20220325
  Receipt Date: 20220723
  Transmission Date: 20221027
  Serious: Yes (Hospitalization, Other)
  Sender: FDA-Public Use
  Company Number: US-NOVARTISTESTPH-NVSC2022US067671

PATIENT
  Age: 74 Year
  Sex: Male

DRUGS (1)
  1. ENTRESTO [Suspect]
     Active Substance: SACUBITRIL\VALSARTAN
     Indication: Product used for unknown indication
     Dosage: UNK (STARTED 9 MONTHS AGO)
     Route: 065
     Dates: start: 2021

REACTIONS (14)
  - Cerebrovascular accident [Unknown]
  - Cardiac disorder [Unknown]
  - Loss of consciousness [Unknown]
  - Glycosylated haemoglobin increased [Unknown]
  - Dysarthria [Unknown]
  - Memory impairment [Unknown]
  - Dysgraphia [Unknown]
  - Anxiety [Unknown]
  - Weight increased [Unknown]
  - Decreased activity [Unknown]
  - Muscular weakness [Unknown]
  - Stress [Unknown]
  - Dehydration [Unknown]
  - Fatigue [Unknown]

NARRATIVE: CASE EVENT DATE: 20210401
